FAERS Safety Report 8826044 (Version 2)
Quarter: 2014Q3

REPORT INFORMATION
  Report Type: Report from Study
  Country: US (occurrence: US)
  Receive Date: 20121005
  Receipt Date: 20140825
  Transmission Date: 20150326
  Serious: Yes (Other)
  Sender: FDA-Public Use
  Company Number: US-ROCHE-1133684

PATIENT
  Sex: Male

DRUGS (18)
  1. PREVACID [Concomitant]
     Active Substance: LANSOPRAZOLE
     Route: 065
     Dates: start: 19980921
  2. FOLIC ACID. [Concomitant]
     Active Substance: FOLIC ACID
     Route: 065
     Dates: start: 19980421
  3. RITUXIMAB [Suspect]
     Active Substance: RITUXIMAB
     Indication: B-CELL LYMPHOMA
     Dosage: 4 DOSES
     Route: 042
     Dates: start: 19990101, end: 19990203
  4. RITUXIMAB [Suspect]
     Active Substance: RITUXIMAB
     Indication: AUTOIMMUNE HAEMOLYTIC ANAEMIA
     Route: 042
     Dates: start: 20000120
  5. SEPTRA DS [Concomitant]
     Active Substance: SULFAMETHOXAZOLE\TRIMETHOPRIM
     Route: 065
     Dates: start: 19981207, end: 19990412
  6. SEPTRA DS [Concomitant]
     Active Substance: SULFAMETHOXAZOLE\TRIMETHOPRIM
     Route: 065
     Dates: start: 19990419
  7. RITUXIMAB [Suspect]
     Active Substance: RITUXIMAB
     Indication: B-CELL LYMPHOMA
     Route: 042
     Dates: start: 19990401
  8. LASIX [Concomitant]
     Active Substance: FUROSEMIDE
     Dosage: HALF TABLET
     Route: 065
     Dates: start: 19981020
  9. PULMICORT TURBUHALER [Concomitant]
     Active Substance: BUDESONIDE
     Dosage: 2 PUFFS
     Route: 065
     Dates: start: 19980727
  10. DEXAMETHASONE. [Concomitant]
     Active Substance: DEXAMETHASONE
     Route: 065
     Dates: start: 19981207, end: 19990412
  11. VALIUM [Concomitant]
     Active Substance: DIAZEPAM
     Route: 065
     Dates: start: 19980925
  12. CHOLESTYRAMINE. [Concomitant]
     Active Substance: CHOLESTYRAMINE
     Route: 065
     Dates: start: 20000309
  13. MYCELEX TROCHES [Concomitant]
     Route: 065
     Dates: start: 19990412
  14. GLUCOPHAGE [Concomitant]
     Active Substance: METFORMIN HYDROCHLORIDE
     Route: 065
     Dates: start: 19990913
  15. DEXAMETHASONE. [Concomitant]
     Active Substance: DEXAMETHASONE
     Route: 065
     Dates: start: 19990419
  16. VENTOLIN [Concomitant]
     Active Substance: ALBUTEROL SULFATE
     Dosage: 4 PUFFS
     Route: 065
     Dates: start: 19980727
  17. NPH INSULIN [Concomitant]
     Active Substance: INSULIN BEEF
     Dosage: 40 UNITS EVERY AM AND 20 UNITS EVERY PM
     Route: 065
     Dates: start: 19980417
  18. NEUPOGEN [Concomitant]
     Active Substance: FILGRASTIM
     Route: 058
     Dates: start: 19990412

REACTIONS (10)
  - Pancytopenia [Unknown]
  - Fluid overload [Unknown]
  - Herpes simplex [Unknown]
  - Candida infection [Unknown]
  - Erythema [Unknown]
  - Oedema peripheral [Unknown]
  - Diarrhoea [Unknown]
  - Neutropenia [Unknown]
  - Warm type haemolytic anaemia [Unknown]
  - Hypersplenism [Unknown]
